FAERS Safety Report 9974047 (Version 2)
Quarter: 2014Q2

REPORT INFORMATION
  Report Type: Spontaneous
  Country: US (occurrence: US)
  Receive Date: 20140306
  Receipt Date: 20140620
  Transmission Date: 20141212
  Serious: Yes (Hospitalization, Other)
  Sender: FDA-Public Use
  Company Number: US-GLAXOSMITHKLINE-A1050507A

PATIENT
  Age: 71 Year
  Sex: Male
  Weight: 121.8 kg

DRUGS (14)
  1. VOTRIENT [Suspect]
     Indication: RENAL CANCER
     Dosage: 800MG PER DAY
     Dates: start: 20130913, end: 20140215
  2. ALLOPURINOL [Concomitant]
  3. LIPITOR [Concomitant]
  4. CELEXA [Concomitant]
  5. CLONIDINE [Concomitant]
  6. DILTIAZEM [Concomitant]
  7. VITAMIN D [Concomitant]
  8. FINASTERIDE [Concomitant]
  9. SYNTHROID [Concomitant]
  10. LISINOPRIL [Concomitant]
  11. MAGNESIUM [Concomitant]
  12. STARLIX [Concomitant]
  13. OMEGA 3 FISH OIL [Concomitant]
  14. JANUVIA [Concomitant]

REACTIONS (10)
  - Blood glucose increased [Recovered/Resolved]
  - Abdominal pain [Recovered/Resolved]
  - Nausea [Recovered/Resolved]
  - Dehydration [Recovered/Resolved]
  - Decreased appetite [Recovered/Resolved]
  - Abdominal pain upper [Recovered/Resolved]
  - Laboratory test abnormal [Recovered/Resolved]
  - Asthenia [Recovered/Resolved]
  - Diarrhoea [Recovered/Resolved]
  - Cancer in remission [Unknown]
